FAERS Safety Report 8859041 (Version 1)
Quarter: 2012Q4

REPORT INFORMATION
  Report Type: 
  Country: US (occurrence: US)
  Receive Date: 20121024
  Receipt Date: 20121024
  Transmission Date: 20130627
  Serious: Yes (Other)
  Sender: FDA-Public Use
  Company Number: US-SANOFI-AVENTIS-2012SA075457

PATIENT
  Sex: Male
  Weight: 118 kg

DRUGS (4)
  1. LOVENOX [Suspect]
     Indication: THROMBOSIS PROPHYLAXIS
     Route: 065
     Dates: start: 201210, end: 201210
  2. LOVENOX [Suspect]
     Indication: ATRIAL FIBRILLATION
     Route: 065
     Dates: start: 201210, end: 201210
  3. LOVENOX [Suspect]
     Indication: THROMBOSIS PROPHYLAXIS
     Route: 065
     Dates: start: 20121011
  4. LOVENOX [Suspect]
     Indication: ATRIAL FIBRILLATION
     Route: 065
     Dates: start: 20121011

REACTIONS (3)
  - Haematocrit decreased [Unknown]
  - Weight increased [Recovering/Resolving]
  - Off label use [Unknown]
